FAERS Safety Report 20730242 (Version 12)
Quarter: 2022Q4

REPORT INFORMATION
  Report Type: Spontaneous
  Country: IN (occurrence: IN)
  Receive Date: 20220420
  Receipt Date: 20221230
  Transmission Date: 20230112
  Serious: Yes (Other)
  Sender: FDA-Public Use
  Company Number: IN-PFIZER INC-202200549802

PATIENT
  Age: 74 Year
  Sex: Female
  Weight: 59 kg

DRUGS (24)
  1. PALBOCICLIB [Suspect]
     Active Substance: PALBOCICLIB
     Indication: Breast cancer metastatic
     Dosage: FOR 21 DAYS/28 DAYS
     Route: 048
     Dates: start: 20210616
  2. PALBOCICLIB [Suspect]
     Active Substance: PALBOCICLIB
     Dosage: FOR 21 DAYS IN A MONTH
     Route: 048
     Dates: start: 20210618
  3. PALBOCICLIB [Suspect]
     Active Substance: PALBOCICLIB
     Dosage: FOR 21 DAYS IN A MONTH
     Route: 048
     Dates: start: 20210718
  4. PALBOCICLIB [Suspect]
     Active Substance: PALBOCICLIB
     Dosage: FOR 21 DAYS IN A MONTH
     Route: 048
     Dates: start: 20210818
  5. PALBOCICLIB [Suspect]
     Active Substance: PALBOCICLIB
     Dosage: FOR 21 DAYS IN A MONTH
     Route: 048
     Dates: start: 20210918
  6. PALBOCICLIB [Suspect]
     Active Substance: PALBOCICLIB
     Dosage: FOR 21 DAYS IN A MONTH
     Route: 048
     Dates: start: 20211018
  7. PALBOCICLIB [Suspect]
     Active Substance: PALBOCICLIB
     Dosage: FOR 21 DAYS IN A MONTH
     Route: 048
     Dates: start: 20211118
  8. PALBOCICLIB [Suspect]
     Active Substance: PALBOCICLIB
     Dosage: FOR 21 DAYS IN A MONTH
     Route: 048
     Dates: start: 20211218
  9. PALBOCICLIB [Suspect]
     Active Substance: PALBOCICLIB
     Dosage: FOR 21 DAYS IN A MONTH
     Route: 048
     Dates: start: 20220118
  10. PALBOCICLIB [Suspect]
     Active Substance: PALBOCICLIB
     Dosage: FOR 21 DAYS IN A MONTH
     Route: 048
     Dates: start: 20220218
  11. PALBOCICLIB [Suspect]
     Active Substance: PALBOCICLIB
     Dosage: FOR 21 DAYS IN A MONTH
     Route: 048
     Dates: start: 20220318
  12. PALBOCICLIB [Suspect]
     Active Substance: PALBOCICLIB
     Indication: Breast cancer metastatic
     Dosage: UNK
  13. FULVESTRANT [Concomitant]
     Active Substance: FULVESTRANT
     Indication: Breast cancer
     Dosage: 500 MG,(RIGHT 250 MG LEFT 250 MG) ONCE A MONTH
     Route: 030
     Dates: start: 202106
  14. FULVESTRANT [Concomitant]
     Active Substance: FULVESTRANT
     Dosage: 500 MG(ONCE A MONTH)
     Route: 030
     Dates: start: 20210618
  15. FULVESTRANT [Concomitant]
     Active Substance: FULVESTRANT
     Dosage: 500 MG(ONCE A MONTH)
     Route: 030
     Dates: start: 20210718
  16. FULVESTRANT [Concomitant]
     Active Substance: FULVESTRANT
     Dosage: 500 MG(ONCE A MONTH)
     Route: 030
     Dates: start: 20210818
  17. FULVESTRANT [Concomitant]
     Active Substance: FULVESTRANT
     Dosage: 500 MG(ONCE A MONTH)
     Route: 030
     Dates: start: 20210918
  18. FULVESTRANT [Concomitant]
     Active Substance: FULVESTRANT
     Dosage: 500 MG(ONCE A MONTH)
     Route: 030
     Dates: start: 20211018
  19. FULVESTRANT [Concomitant]
     Active Substance: FULVESTRANT
     Dosage: 500 MG(ONCE A MONTH)
     Route: 030
     Dates: start: 20211118
  20. FULVESTRANT [Concomitant]
     Active Substance: FULVESTRANT
     Dosage: 500 MG(ONCE A MONTH)
     Route: 030
     Dates: start: 20211218
  21. FULVESTRANT [Concomitant]
     Active Substance: FULVESTRANT
     Dosage: 500 MG(ONCE A MONTH)
     Route: 030
     Dates: start: 20220118
  22. FULVESTRANT [Concomitant]
     Active Substance: FULVESTRANT
     Dosage: 500 MG(ONCE A MONTH)
     Route: 030
     Dates: start: 20220218
  23. FULVESTRANT [Concomitant]
     Active Substance: FULVESTRANT
     Dosage: 500 MG(ONCE A MONTH)
     Route: 030
     Dates: start: 20220318
  24. FULVESTRANT [Concomitant]
     Active Substance: FULVESTRANT
     Dosage: 520 MG (ONCE A MONTH)
     Route: 030

REACTIONS (25)
  - Cataract [Unknown]
  - Aortic arteriosclerosis [Unknown]
  - White blood cell count decreased [Unknown]
  - Fatigue [Unknown]
  - Bowel movement irregularity [Unknown]
  - Constipation [Unknown]
  - Blood thyroid stimulating hormone increased [Unknown]
  - Lymphadenopathy [Unknown]
  - Myocardial calcification [Unknown]
  - Biopsy thyroid gland abnormal [Unknown]
  - Osteoarthritis [Unknown]
  - Osteoporosis [Unknown]
  - Blood creatinine increased [Unknown]
  - Blood glucose increased [Unknown]
  - Haemoglobin decreased [Unknown]
  - Haematocrit decreased [Unknown]
  - Red blood cell count decreased [Unknown]
  - Mean cell volume increased [Unknown]
  - Mean cell haemoglobin increased [Unknown]
  - Mean cell haemoglobin concentration increased [Unknown]
  - Red cell distribution width increased [Unknown]
  - White blood cell count decreased [Unknown]
  - Monocyte count increased [Unknown]
  - Blood uric acid increased [Unknown]
  - Globulins decreased [Unknown]
